FAERS Safety Report 9809026 (Version 1)
Quarter: 2014Q1

REPORT INFORMATION
  Report Type: Spontaneous
  Country: US (occurrence: US)
  Receive Date: 20140110
  Receipt Date: 20140110
  Transmission Date: 20141002
  Serious: Yes (Hospitalization)
  Sender: FDA-Public Use
  Company Number: US-GLAXOSMITHKLINE-B0959295A

PATIENT
  Age: 16 Year
  Sex: Male

DRUGS (1)
  1. BUPROPION [Suspect]
     Indication: PRODUCT USED FOR UNKNOWN INDICATION
     Dosage: 5TAB PER DAY
     Route: 048

REACTIONS (5)
  - Grand mal convulsion [Unknown]
  - Intentional drug misuse [Unknown]
  - Mental status changes [Unknown]
  - Hallucination [Unknown]
  - Feeling abnormal [Unknown]
